FAERS Safety Report 20073783 (Version 1)
Quarter: 2021Q4

REPORT INFORMATION
  Report Type: Spontaneous
  Country: US (occurrence: None)
  Receive Date: 20211112
  Receipt Date: 20211112
  Transmission Date: 20220303
  Serious: No
  Sender: FDA-Public Use
  Company Number: None

PATIENT
  Sex: Female

DRUGS (1)
  1. HUMIRA [Suspect]
     Active Substance: ADALIMUMAB
     Indication: Rheumatoid arthritis
     Dosage: OTHER QUANTITY : 40MG/0.8ML;?OTHER FREQUENCY : EVERY 14 DAY;?
     Route: 058
     Dates: start: 20171005

REACTIONS (3)
  - Memory impairment [None]
  - Lipoma [None]
  - Injection site pain [None]
